FAERS Safety Report 7547224-2 (Version None)
Quarter: 2011Q2

REPORT INFORMATION
  Report Type: 
  Country: None (occurrence: None)
  Receive Date: 20110607
  Receipt Date: 20110531
  Transmission Date: 20111010
  Serious: Yes (Hospitalization, Other)
  Sender: FDA-Public Use
  Company Number: 2011SP020393

PATIENT
  Sex: Male
  Weight: 1.6 kg

DRUGS (9)
  1. VALPROATE SODIUM [Suspect]
     Indication: PRODUCT USED FOR UNKNOWN INDICATION
     Dosage: TRPL
     Route: 064
  2. TRIAZOLAM [Suspect]
     Indication: PRODUCT USED FOR UNKNOWN INDICATION
     Dosage: TRPL
     Route: 064
  3. ETIZOLAM (ETIZOLAM) [Suspect]
     Indication: PRODUCT USED FOR UNKNOWN INDICATION
     Dosage: TRPL
     Route: 064
  4. ETHYL LOFLAZEPATE (ETHYL LOFLAZEPATE) [Suspect]
     Indication: PRODUCT USED FOR UNKNOWN INDICATION
     Dosage: TRPL
     Route: 064
  5. MIRTAZAPINE [Suspect]
     Indication: PRODUCT USED FOR UNKNOWN INDICATION
     Dosage: TRPL
     Route: 064
  6. BROMAZEPAM (BROMAZEPAM) [Suspect]
     Indication: PRODUCT USED FOR UNKNOWN INDICATION
     Dosage: TRPL
     Route: 064
  7. PAROXETINE HCL [Suspect]
     Indication: PRODUCT USED FOR UNKNOWN INDICATION
     Dosage: TRPL
     Route: 064
  8. HYDROXYZINE HYDROCHLORIDE [Suspect]
     Indication: PRODUCT USED FOR UNKNOWN INDICATION
     Dosage: TRPL
     Route: 064
  9. FLUNITRAZEPAM (FLUNITRAZEPAM) [Suspect]
     Dosage: TRPL
     Route: 064

REACTIONS (6)
  - TACHYPNOEA [None]
  - HYPERREFLEXIA [None]
  - TREMOR NEONATAL [None]
  - MATERNAL DRUGS AFFECTING FOETUS [None]
  - DRUG WITHDRAWAL SYNDROME NEONATAL [None]
  - PREMATURE BABY [None]
